FAERS Safety Report 4583755-5 (Version None)
Quarter: 2005Q1

REPORT INFORMATION
  Report Type: 
  Country: None (occurrence: None)
  Receive Date: 20050211
  Receipt Date: 20050131
  Transmission Date: 20050727
  Serious: Yes (Other)
  Sender: FDA-Public Use
  Company Number: 2005024003

PATIENT
  Age: 81 Year
  Sex: Female
  Weight: 74.8435 kg

DRUGS (5)
  1. LIPITOR [Suspect]
     Indication: BLOOD CHOLESTEROL INCREASED
     Dosage: ORAL
     Route: 048
     Dates: start: 20010101, end: 20030101
  2. ATENOLOL [Concomitant]
  3. OMEPRAZOLE [Concomitant]
  4. ACETYLSALICYLIC ACID SRT [Concomitant]
  5. IBUPROFEN [Concomitant]

REACTIONS (3)
  - ARTERIOSCLEROSIS [None]
  - MYALGIA [None]
  - UTERINE CANCER [None]
